FAERS Safety Report 10590799 (Version 3)
Quarter: 2016Q1

REPORT INFORMATION
  Report Type: Spontaneous
  Country: US (occurrence: US)
  Receive Date: 20141118
  Receipt Date: 20160210
  Transmission Date: 20160525
  Serious: Yes (Hospitalization, Other)
  Sender: FDA-Public Use
  Company Number: US-PFIZER INC-2014306542

PATIENT
  Age: 42 Year
  Sex: Male

DRUGS (42)
  1. LOVENOX [Concomitant]
     Active Substance: ENOXAPARIN SODIUM
     Dosage: 40 MG, DAILY
     Route: 058
     Dates: start: 20141013
  2. EMLA [Concomitant]
     Active Substance: LIDOCAINE\PRILOCAINE
     Dosage: 1 DF, UNK
     Route: 061
  3. XYLOCAINE HCL [Concomitant]
     Dosage: 0.2 ML, UNK
     Route: 058
  4. MAGNESIUM SULFATE. [Concomitant]
     Active Substance: MAGNESIUM SULFATE
     Dosage: 50 ML, UNK
  5. LIDODERM [Concomitant]
     Active Substance: LIDOCAINE
     Dosage: 1 DF, DAILY
     Route: 062
  6. LIDOCAINE. [Concomitant]
     Active Substance: LIDOCAINE
     Dosage: 50 ML, UNK
  7. CARAFATE [Concomitant]
     Active Substance: SUCRALFATE
     Dosage: 1G DAILY (AT BEDTIME)
     Route: 048
  8. NICODERM CQ [Concomitant]
     Active Substance: NICOTINE
     Dosage: 21 MG, DAILY
  9. REMERON [Concomitant]
     Active Substance: MIRTAZAPINE
     Dosage: 15 MG DAILY (AT BEDTIME)
     Route: 048
  10. DUONEB [Concomitant]
     Active Substance: ALBUTEROL SULFATE\IPRATROPIUM BROMIDE
     Dosage: 3 ML, 4X/DAY
  11. OXYCODONE [Concomitant]
     Active Substance: OXYCODONE
     Indication: PAIN
     Dosage: 20 MG, EVERY 4 HRS
     Route: 048
  12. SENOKOT-S [Concomitant]
     Active Substance: DOCUSATE SODIUM\SENNOSIDES
     Dosage: 2 DF DAILY (AT BEDTIME)
     Route: 048
  13. LIDOCAINE. [Concomitant]
     Active Substance: LIDOCAINE
     Dosage: 20 ML, UNK
  14. VFEND [Suspect]
     Active Substance: VORICONAZOLE
     Dosage: 200 MG, 2X/DAY
     Route: 048
  15. ZOFRAN [Concomitant]
     Active Substance: ONDANSETRON HYDROCHLORIDE
     Dosage: 4 MG, 4X/DAY
     Route: 042
  16. BSS [Concomitant]
     Active Substance: CALCIUM CHLORIDE\MAGNESIUM CHLORIDE\POTASSIUM CHLORIDE\SODIUM ACETATE\SODIUM CHLORIDE\SODIUM CITRATE
     Dosage: UNK
     Route: 061
  17. PROTONIX [Suspect]
     Active Substance: PANTOPRAZOLE SODIUM
     Dosage: 40 MG, DAILY
     Route: 048
  18. XANAX [Suspect]
     Active Substance: ALPRAZOLAM
     Dosage: 0.5 MG, 2X/DAY
     Route: 048
  19. FOLIC ACID. [Concomitant]
     Active Substance: FOLIC ACID
     Dosage: 1 MG, DAILY
     Route: 048
  20. FLEET ENEMA [Concomitant]
     Active Substance: SODIUM PHOSPHATE, DIBASIC\SODIUM PHOSPHATE, MONOBASIC
     Dosage: 133 ML, DAILY
     Route: 054
  21. POTASSIUM CHLORIDE. [Concomitant]
     Active Substance: POTASSIUM CHLORIDE
     Dosage: 20 MEQ, DAILY (AS DIRECTED)
     Route: 042
  22. NARCAN [Concomitant]
     Active Substance: NALOXONE HYDROCHLORIDE
  23. BUPIVACAINE [Concomitant]
     Active Substance: BUPIVACAINE
     Dosage: 550 ML, UNK
  24. DILTIAZEM [Concomitant]
     Active Substance: DILTIAZEM
     Dosage: 60 MG, 3X/DAY
     Route: 048
  25. THIAMINE. [Concomitant]
     Active Substance: THIAMINE
     Dosage: 100 MG, DAILY
     Route: 048
  26. NORMAL SALINE [Concomitant]
     Active Substance: SODIUM CHLORIDE
     Dosage: 1000 ML, UNK
     Route: 042
  27. LACTOBACILLUS [Concomitant]
     Active Substance: LACTOBACILLUS ACIDOPHILUS
     Dosage: 2 DF, DAILY
     Route: 048
  28. OXYCONTIN [Concomitant]
     Active Substance: OXYCODONE HYDROCHLORIDE
     Dosage: 30 MG, 3X/DAY
     Route: 048
  29. SYMBICORT [Concomitant]
     Active Substance: BUDESONIDE\FORMOTEROL FUMARATE DIHYDRATE
     Dosage: 2 DF, 2X/DAY
  30. RESTORIL [Concomitant]
     Active Substance: TEMAZEPAM
     Dosage: 15 MG DAILY (AT BEDTIME)
     Route: 048
  31. CATHFLO ACTIVASE [Concomitant]
     Active Substance: ALTEPLASE
     Dosage: 2 MG, UNK
  32. MILK OF MAGNESIA [Concomitant]
     Active Substance: MAGNESIUM HYDROXIDE
     Dosage: 30 ML, DAILY
     Route: 048
  33. MAGNESIUM SULFATE. [Concomitant]
     Active Substance: MAGNESIUM SULFATE
     Dosage: 100 UNK, UNK (AS DIRECTED)
  34. NALOXONE [Concomitant]
     Active Substance: NALOXONE
     Dosage: 0.1 MG, UNK
     Route: 042
  35. ACIDOPHILLUS-LACTOBACILLUS [Concomitant]
     Route: 048
  36. SPIRIVA [Suspect]
     Active Substance: TIOTROPIUM BROMIDE MONOHYDRATE
     Dosage: 18 UG, DAILY
  37. MIRALAX [Concomitant]
     Active Substance: POLYETHYLENE GLYCOL 3350
     Dosage: 17 G, DAILY
     Route: 048
  38. COLACE [Concomitant]
     Active Substance: DOCUSATE SODIUM
     Dosage: 100 MG, DAILY
  39. GABAPENTIN. [Concomitant]
     Active Substance: GABAPENTIN
     Dosage: 400 MG, 3X/DAY
     Route: 048
  40. LACTULOSE. [Concomitant]
     Active Substance: LACTULOSE
     Dosage: 20 MG, 1X/DAY
     Route: 048
  41. FLEXERIL [Concomitant]
     Active Substance: CYCLOBENZAPRINE HYDROCHLORIDE
     Dosage: 10 MG, 3X/DAY
     Route: 048
  42. OXYCODONE [Concomitant]
     Active Substance: OXYCODONE
     Dosage: 10 MG, UNK (Q4HR) (PRN MILD TO MODERATE PAIN)
     Route: 048

REACTIONS (3)
  - Gastrointestinal haemorrhage [Unknown]
  - Alcohol abuse [Unknown]
  - Lung abscess [Unknown]
